FAERS Safety Report 5953854-1 (Version None)
Quarter: 2008Q4

REPORT INFORMATION
  Report Type: 
  Country: None (occurrence: None)
  Receive Date: 20081114
  Receipt Date: 20081105
  Transmission Date: 20090506
  Serious: Yes (Hospitalization)
  Sender: FDA-Public Use
  Company Number: FR-PFIZER INC-033-9211-M0200005

PATIENT
  Age: 66 Year
  Sex: Female

DRUGS (6)
  1. MEDROL [Suspect]
     Indication: ILL-DEFINED DISORDER
     Dosage: DAILY DOSE:40MG
     Route: 048
     Dates: start: 20010507, end: 20010906
  2. DEBRIDAT [Suspect]
     Indication: ILL-DEFINED DISORDER
     Route: 048
     Dates: start: 20000801, end: 20010906
  3. DOXORUBICIN HCL [Suspect]
     Indication: ILL-DEFINED DISORDER
     Route: 048
     Dates: start: 20010808, end: 20010808
  4. EPREX [Concomitant]
     Dates: start: 20001214, end: 20010906
  5. SOPHIDONE [Concomitant]
     Route: 048
     Dates: start: 20010410
  6. MOPRAL [Concomitant]
     Route: 048
     Dates: start: 20000629

REACTIONS (2)
  - PURPURA [None]
  - TOXIC SKIN ERUPTION [None]
